FAERS Safety Report 7454420-1 (Version None)
Quarter: 2011Q2

REPORT INFORMATION
  Report Type: 
  Country: None (occurrence: None)
  Receive Date: 20110425
  Receipt Date: 20110412
  Transmission Date: 20111010
  Serious: Yes (Other)
  Sender: FDA-Public Use
  Company Number: 030963

PATIENT
  Sex: Male

DRUGS (1)
  1. KEPPRA [Suspect]
     Dosage: 3000 MG,

REACTIONS (1)
  - LEUKOPENIA [None]
